FAERS Safety Report 26068879 (Version 1)
Quarter: 2025Q4

REPORT INFORMATION
  Report Type: Spontaneous
  Country: JP (occurrence: JP)
  Receive Date: 20251120
  Receipt Date: 20251120
  Transmission Date: 20260117
  Serious: Yes (Life-Threatening, Hospitalization)
  Sender: ACCORD
  Company Number: JP-MLMSERVICE-20251031-PI691929-00232-1

PATIENT
  Age: 51 Year
  Sex: Male

DRUGS (3)
  1. MYCOPHENOLATE MOFETIL [Suspect]
     Active Substance: MYCOPHENOLATE MOFETIL
     Indication: Immunosuppressant drug therapy
  2. TACROLIMUS [Suspect]
     Active Substance: TACROLIMUS
     Indication: Immunosuppressant drug therapy
  3. PROBIOTICS NOS [Suspect]
     Active Substance: PROBIOTICS NOS
     Indication: Immunosuppressant drug therapy
     Dosage: PROBIOTIC COMMENCED ON POD 3
     Route: 048

REACTIONS (6)
  - Gas gangrene [Recovering/Resolving]
  - Septic shock [Recovering/Resolving]
  - Gastritis bacterial [Recovering/Resolving]
  - Cerebral artery embolism [Recovering/Resolving]
  - Clostridium bacteraemia [Recovering/Resolving]
  - Air embolism [Recovering/Resolving]
